FAERS Safety Report 17014016 (Version 1)
Quarter: 2019Q4

REPORT INFORMATION
  Report Type: Spontaneous
  Country: US (occurrence: US)
  Receive Date: 20191111
  Receipt Date: 20191111
  Transmission Date: 20200122
  Serious: No
  Sender: FDA-Public Use
  Company Number: US-APOTEX-2019AP023816

PATIENT

DRUGS (2)
  1. CELECOXIB. [Suspect]
     Active Substance: CELECOXIB
     Indication: PRODUCT USED FOR UNKNOWN INDICATION
     Dosage: 100 MG, UNK
     Route: 065
  2. CELECOXIB. [Suspect]
     Active Substance: CELECOXIB
     Dosage: 200 UNK, (200 EVERY 12)
     Route: 065

REACTIONS (11)
  - Osteoarthritis [Unknown]
  - Asthma [Unknown]
  - Therapeutic product effect incomplete [Unknown]
  - Abdominal pain upper [Unknown]
  - Migraine [Unknown]
  - Knee operation [Unknown]
  - Abdominal discomfort [Unknown]
  - Mechanical ventilation [Unknown]
  - Reflux gastritis [Unknown]
  - Chest pain [Unknown]
  - Arthritis [Unknown]
